FAERS Safety Report 15542315 (Version 1)
Quarter: 2018Q4

REPORT INFORMATION
  Report Type: Spontaneous
  Country: US (occurrence: US)
  Receive Date: 20181023
  Receipt Date: 20181023
  Transmission Date: 20190205
  Serious: Yes (Other)
  Sender: FDA-Public Use
  Company Number: US-PFIZER INC-2018418847

PATIENT
  Age: 73 Year
  Sex: Female

DRUGS (1)
  1. XANAX [Suspect]
     Active Substance: ALPRAZOLAM
     Dosage: 1 MG, 2X/DAY

REACTIONS (25)
  - Arthritis [Unknown]
  - Emphysema [Unknown]
  - Panic attack [Unknown]
  - Feeling abnormal [Unknown]
  - Heart rate increased [Unknown]
  - Weight increased [Unknown]
  - Hypothyroidism [Unknown]
  - Scoliosis [Unknown]
  - Osteoarthritis [Unknown]
  - Chest pain [Unknown]
  - Cardiac murmur [Unknown]
  - Nervousness [Unknown]
  - Depression [Unknown]
  - Back pain [Unknown]
  - Feeling hot [Unknown]
  - Anxiety [Unknown]
  - Hypertension [Unknown]
  - Tremor [Unknown]
  - Psoriatic arthropathy [Unknown]
  - Spinal column stenosis [Unknown]
  - Spinal osteoarthritis [Unknown]
  - Asthma [Unknown]
  - Memory impairment [Unknown]
  - Palpitations [Unknown]
  - Hypoaesthesia [Unknown]
